FAERS Safety Report 11247244 (Version 2)
Quarter: 2015Q3

REPORT INFORMATION
  Report Type: Spontaneous
  Country: FR (occurrence: FR)
  Receive Date: 20150708
  Receipt Date: 20150909
  Transmission Date: 20151125
  Serious: Yes (Life-Threatening, Other)
  Sender: FDA-Public Use
  Company Number: FR-PFIZER INC-2015223598

PATIENT
  Sex: Female

DRUGS (1)
  1. EFFEXOR LP [Suspect]
     Active Substance: VENLAFAXINE HYDROCHLORIDE
     Indication: DEPRESSION
     Dosage: 37.5 MG, DAILY
     Route: 064

REACTIONS (8)
  - Apparent death [Recovered/Resolved]
  - Foetal heart rate decreased [Recovered/Resolved]
  - Respiratory distress [Recovered/Resolved]
  - Pallor [Recovered/Resolved]
  - Hypotonia neonatal [Recovered/Resolved]
  - Foetal hypokinesia [Recovered/Resolved]
  - Maternal exposure during pregnancy [Recovered/Resolved]
  - Anaemia neonatal [Recovered/Resolved]

NARRATIVE: CASE EVENT DATE: 20150511
